FAERS Safety Report 10311940 (Version 1)
Quarter: 2014Q3

REPORT INFORMATION
  Report Type: Spontaneous
  Country: US (occurrence: None)
  Receive Date: 20140715
  Receipt Date: 20140715
  Transmission Date: 20150326
  Serious: Yes (Death)
  Sender: FDA-Public Use
  Company Number: INS201407-000126

PATIENT
  Sex: Female
  Weight: 92.07 kg

DRUGS (1)
  1. SUBSYS [Suspect]
     Active Substance: FENTANYL
     Indication: BREAKTHROUGH PAIN
     Dosage: EVERY SIX HOUR AS NEEDED
     Route: 060
     Dates: start: 20131001

REACTIONS (1)
  - Death [None]
